FAERS Safety Report 19064084 (Version 1)
Quarter: 2021Q1

REPORT INFORMATION
  Report Type: Spontaneous
  Country: JO (occurrence: IQ)
  Receive Date: 20210326
  Receipt Date: 20210326
  Transmission Date: 20210420
  Serious: Yes (Death, Other)
  Sender: FDA-Public Use
  Company Number: NVSC2021IQ069769

PATIENT
  Age: 28 Year
  Sex: Male

DRUGS (5)
  1. CONGESTAL [Concomitant]
     Indication: PRODUCT USED FOR UNKNOWN INDICATION
     Dosage: UNK
     Route: 065
  2. PARACETAMOL [Concomitant]
     Active Substance: ACETAMINOPHEN
     Indication: PRODUCT USED FOR UNKNOWN INDICATION
     Dosage: UNK
     Route: 065
  3. DEXAMETHASONE. [Suspect]
     Active Substance: DEXAMETHASONE
     Indication: INFLAMMATION
     Dosage: UNK
     Route: 030
  4. DICLOFENAC SODIUM. [Suspect]
     Active Substance: DICLOFENAC SODIUM
     Indication: PAIN
  5. DICLOFENAC SODIUM. [Suspect]
     Active Substance: DICLOFENAC SODIUM
     Indication: INFLAMMATION
     Dosage: UNK
     Route: 030

REACTIONS (5)
  - Vomiting [Unknown]
  - Decreased appetite [Unknown]
  - Abdominal pain [Unknown]
  - Myocardial infarction [Fatal]
  - Hyperthermia [Unknown]
